FAERS Safety Report 15322622 (Version 1)
Quarter: 2018Q3

REPORT INFORMATION
  Report Type: Report from Study
  Country: US (occurrence: US)
  Receive Date: 20180827
  Receipt Date: 20180827
  Transmission Date: 20181010
  Serious: Yes (Other)
  Sender: FDA-Public Use
  Company Number: US-JNJFOC-20180833895

PATIENT
  Sex: Male

DRUGS (12)
  1. ENTRESTO [Concomitant]
     Active Substance: SACUBITRIL\VALSARTAN
  2. IMBRUVICA [Suspect]
     Active Substance: IBRUTINIB
     Indication: LYMPHOCYTIC LEUKAEMIA
     Route: 048
     Dates: start: 20180726, end: 2018
  3. BREO ELLIPTA [Concomitant]
     Active Substance: FLUTICASONE FUROATE\VILANTEROL TRIFENATATE
  4. COUMADIN [Concomitant]
     Active Substance: WARFARIN SODIUM
  5. FUROSEMIDE. [Concomitant]
     Active Substance: FUROSEMIDE
  6. TAMSULOSIN [Concomitant]
     Active Substance: TAMSULOSIN
  7. POTASSIUM [Concomitant]
     Active Substance: POTASSIUM
  8. GABAPENTIN. [Concomitant]
     Active Substance: GABAPENTIN
  9. ALLOPURINOL. [Concomitant]
     Active Substance: ALLOPURINOL
  10. ATORVASTATIN [Concomitant]
     Active Substance: ATORVASTATIN
  11. CARVEDILOL. [Concomitant]
     Active Substance: CARVEDILOL
  12. DOXYCYCLINE. [Concomitant]
     Active Substance: DOXYCYCLINE

REACTIONS (2)
  - Adverse drug reaction [Unknown]
  - Internal haemorrhage [Unknown]
